FAERS Safety Report 20609401 (Version 2)
Quarter: 2022Q1

REPORT INFORMATION
  Report Type: Spontaneous
  Country: PT (occurrence: PT)
  Receive Date: 20220317
  Receipt Date: 20220319
  Transmission Date: 20220423
  Serious: Yes (Death, Other)
  Sender: FDA-Public Use
  Company Number: PT-BoehringerIngelheim-2022-BI-159697

PATIENT
  Age: 78 Year
  Sex: Male

DRUGS (1)
  1. DABIGATRAN [Suspect]
     Active Substance: DABIGATRAN
     Indication: Atrial fibrillation

REACTIONS (2)
  - Spontaneous haemorrhage [Fatal]
  - Shock haemorrhagic [Fatal]
